FAERS Safety Report 21272931 (Version 2)
Quarter: 2023Q1

REPORT INFORMATION
  Report Type: Spontaneous
  Country: FR (occurrence: FR)
  Receive Date: 20220831
  Receipt Date: 20230124
  Transmission Date: 20230418
  Serious: Yes (Other)
  Sender: FDA-Public Use
  Company Number: FR-CELLTRION INC.-2022FR013887

PATIENT

DRUGS (1)
  1. RITUXIMAB [Suspect]
     Active Substance: RITUXIMAB
     Indication: Cryoglobulinaemia
     Dosage: 375 MG/M2, QW
     Dates: start: 202012

REACTIONS (4)
  - Cryoglobulinaemia [Recovered/Resolved]
  - Condition aggravated [Recovered/Resolved]
  - Paradoxical drug reaction [Unknown]
  - Off label use [Unknown]
